FAERS Safety Report 6868261-7 (Version None)
Quarter: 2010Q3

REPORT INFORMATION
  Report Type: 
  Country: None (occurrence: None)
  Receive Date: 20100722
  Receipt Date: 20080524
  Transmission Date: 20110219
  Serious: No
  Sender: FDA-Public Use
  Company Number: US-PFIZER INC-2008045729

PATIENT
  Sex: Female
  Weight: 58.97 kg

DRUGS (3)
  1. CHANTIX [Suspect]
     Indication: SMOKING CESSATION THERAPY
     Dates: start: 20080501, end: 20080523
  2. LEXAPRO [Concomitant]
  3. VITAMINS [Concomitant]

REACTIONS (4)
  - AGITATION [None]
  - DEPRESSION [None]
  - FLATULENCE [None]
  - INSOMNIA [None]
